FAERS Safety Report 5309461-7 (Version None)
Quarter: 2007Q2

REPORT INFORMATION
  Report Type: 
  Country: None (occurrence: None)
  Receive Date: 20070427
  Receipt Date: 20070419
  Transmission Date: 20071010
  Serious: Yes (Other)
  Sender: FDA-Public Use
  Company Number: PHEH2007US05828

PATIENT
  Age: 55 Year
  Sex: Female

DRUGS (4)
  1. ATENOLOL [Concomitant]
  2. ZELNORM [Suspect]
     Indication: CONSTIPATION
     Dosage: 6 MG, BID
     Route: 048
     Dates: start: 20050101, end: 20070418
  3. HYDROCHLOROTHIAZIDE [Concomitant]
  4. FOSINOPRIL SODIUM [Concomitant]

REACTIONS (3)
  - CHEST PAIN [None]
  - PAIN IN EXTREMITY [None]
  - TRANSIENT ISCHAEMIC ATTACK [None]
